FAERS Safety Report 8432113-1 (Version None)
Quarter: 2012Q2

REPORT INFORMATION
  Report Type: 
  Country: None (occurrence: None)
  Receive Date: 20120606
  Receipt Date: 20120521
  Transmission Date: 20120825
  Serious: Yes (Other)
  Sender: FDA-Public Use
  Company Number: FK201201454

PATIENT
  Age: 36 Year

DRUGS (1)
  1. PROPRANOLOL HYDROCHLORIDE (MANUFACTURER UNKNOWN) (PROPRANOLOL HYDROCHL [Suspect]
     Indication: OFF LABEL USE
     Dosage: 2 MG/KG, ORAL
     Route: 048

REACTIONS (1)
  - NIGHTMARE [None]
